FAERS Safety Report 19271781 (Version 1)
Quarter: 2021Q2

REPORT INFORMATION
  Report Type: Spontaneous
  Country: FR (occurrence: FR)
  Receive Date: 20210519
  Receipt Date: 20210519
  Transmission Date: 20210717
  Serious: Yes (Life-Threatening, Other)
  Sender: FDA-Public Use
  Company Number: FR-AUROBINDO-AUR-APL-2021-019844

PATIENT
  Sex: Female

DRUGS (3)
  1. BUSULFAN. [Suspect]
     Active Substance: BUSULFAN
     Indication: EWING^S SARCOMA
     Dosage: 1 DOSAGE FORM
     Route: 042
     Dates: start: 20170721, end: 20171115
  2. MELPHALAN. [Suspect]
     Active Substance: MELPHALAN
     Indication: EWING^S SARCOMA
     Dosage: 1 DOSAGE FORM
     Route: 042
     Dates: start: 20170721, end: 20171115
  3. CYCLOPHOSPHAMIDE. [Suspect]
     Active Substance: CYCLOPHOSPHAMIDE
     Indication: EWING^S SARCOMA
     Dosage: 1 DOSAGE FORM
     Route: 042
     Dates: start: 20170721, end: 20171115

REACTIONS (4)
  - Pulmonary veno-occlusive disease [Recovering/Resolving]
  - Dyspnoea [Recovering/Resolving]
  - Pulmonary arterial hypertension [Recovered/Resolved]
  - Bronchiolitis [Recovering/Resolving]

NARRATIVE: CASE EVENT DATE: 201711
